FAERS Safety Report 6183557-2 (Version None)
Quarter: 2009Q2

REPORT INFORMATION
  Report Type: 
  Country: None (occurrence: None)
  Receive Date: 20090508
  Receipt Date: 20090505
  Transmission Date: 20091009
  Serious: Yes (Death, Hospitalization)
  Sender: FDA-Public Use
  Company Number: RO-BRISTOL-MYERS SQUIBB COMPANY-14547913

PATIENT
  Age: 49 Year
  Sex: Male

DRUGS (6)
  1. BARACLUDE [Suspect]
     Indication: HEPATITIS B
     Route: 048
     Dates: start: 20090209, end: 20090301
  2. PLASMA [Concomitant]
     Dosage: FRESH PLASMA TRANSUFION
  3. FLUMAZENIL [Concomitant]
  4. RIFAXIMIN [Concomitant]
  5. FUROSEMIDE [Concomitant]
  6. ESOMEPRAZOLE [Concomitant]

REACTIONS (2)
  - HEPATIC ENCEPHALOPATHY [None]
  - RENAL FAILURE [None]
